FAERS Safety Report 7850392-6 (Version None)
Quarter: 2011Q4

REPORT INFORMATION
  Report Type: 
  Country: None (occurrence: None)
  Receive Date: 20111026
  Receipt Date: 20111011
  Transmission Date: 20120403
  Serious: No
  Sender: FDA-Public Use
  Company Number: AU-TYCO HEALTHCARE/MALLINCKRODT-T201102098

PATIENT
  Age: 80 Year
  Sex: Female

DRUGS (1)
  1. EXALGO [Suspect]
     Indication: CANCER PAIN
     Dosage: 8 MG, UNK

REACTIONS (3)
  - VOMITING [None]
  - NAUSEA [None]
  - DRUG INTOLERANCE [None]
